FAERS Safety Report 6371447-1 (Version None)
Quarter: 2009Q3

REPORT INFORMATION
  Report Type: 
  Country: None (occurrence: None)
  Receive Date: 20090923
  Receipt Date: 20071019
  Transmission Date: 20100115
  Serious: Yes (Other)
  Sender: FDA-Public Use
  Company Number: US-ASTRAZENECA-2007UW07759

PATIENT
  Age: 31 Year
  Sex: Male
  Weight: 147.4 kg

DRUGS (13)
  1. SEROQUEL [Suspect]
     Indication: BIPOLAR DISORDER
     Dosage: 200 - 400 MG
     Route: 048
     Dates: start: 19950101
  2. SEROQUEL [Suspect]
     Dosage: 100 MG - 800 MG, FLUCTUATING
     Route: 048
     Dates: start: 20021217
  3. HALDOL [Concomitant]
     Dosage: 150 U
  4. BUPROPION HCL [Concomitant]
  5. TRAZODONE HCL [Concomitant]
  6. CARBAMAZEPINE [Concomitant]
  7. BUSPIRONE HCL [Concomitant]
     Dates: start: 20021217
  8. PIOGLITAZONE [Concomitant]
     Dates: start: 20021217
  9. LOPRESSOR [Concomitant]
     Dates: start: 20021217
  10. GLUCOPHAGE [Concomitant]
     Dates: start: 20030525
  11. CELECOXIB [Concomitant]
     Dates: start: 20030525
  12. AVANDIA [Concomitant]
     Dates: start: 20060126
  13. VYTORIN [Concomitant]
     Dosage: 10-80 MG
     Dates: start: 20060202

REACTIONS (2)
  - DIABETES MELLITUS [None]
  - PANCREATITIS [None]
